FAERS Safety Report 4413460-7 (Version None)
Quarter: 2004Q3

REPORT INFORMATION
  Report Type: 
  Country: None (occurrence: None)
  Receive Date: 20040727
  Receipt Date: 20040720
  Transmission Date: 20050211
  Serious: Yes (Hospitalization)
  Sender: FDA-Public Use
  Company Number: 2004RL000045

PATIENT
  Age: 66 Year
  Sex: Male

DRUGS (5)
  1. RYTHMOL [Suspect]
     Indication: ATRIAL FIBRILLATION
     Dosage: 600 MG;QD;PO
     Route: 048
     Dates: start: 20040127, end: 20040202
  2. AMIODARONE HCL [Suspect]
     Indication: ATRIAL FIBRILLATION
     Dosage: 200 MG;QD;PO
     Route: 048
     Dates: start: 20040115, end: 20040127
  3. INDAPAMIDE [Suspect]
     Indication: ATRIAL FIBRILLATION
     Dosage: 1 DF;QD;PO
     Route: 048
     Dates: start: 20040115, end: 20040131
  4. CANDESARTAN CILEXETIL (CANDESARTAN CILEXETIL) [Suspect]
     Indication: ATRIAL FIBRILLATION
     Dosage: 1 DF;QD;PO
     Route: 048
     Dates: start: 20040115, end: 20040130
  5. FLUINDIONE (FLUINDIONE) [Concomitant]
     Indication: ATRIAL FIBRILLATION
     Dosage: 10 MG;QD;PO
     Route: 048
     Dates: start: 20040115

REACTIONS (3)
  - ACUTE GENERALISED EXANTHEMATOUS PUSTULOSIS [None]
  - PSORIASIS [None]
  - RASH ERYTHEMATOUS [None]
